FAERS Safety Report 23880619 (Version 1)
Quarter: 2024Q2

REPORT INFORMATION
  Report Type: Spontaneous
  Country: US (occurrence: US)
  Receive Date: 20240521
  Receipt Date: 20240521
  Transmission Date: 20240716
  Serious: No
  Sender: FDA-Public Use
  Company Number: US-IMP-2024000271

PATIENT
  Age: 76 Year
  Sex: Female

DRUGS (1)
  1. VEVYE [Suspect]
     Active Substance: CYCLOSPORINE
     Indication: Keratoneuralgia
     Dosage: ONE TIME PER DAY IN EACH EYE

REACTIONS (3)
  - Product use issue [Unknown]
  - Product administration error [Unknown]
  - Intentional product use issue [Unknown]
